FAERS Safety Report 9890081 (Version 1)
Quarter: 2014Q1

REPORT INFORMATION
  Report Type: Spontaneous
  Country: US (occurrence: US)
  Receive Date: 20140212
  Receipt Date: 20140212
  Transmission Date: 20141002
  Serious: No
  Sender: FDA-Public Use
  Company Number: US-BIOGENIDEC-2014BI011126

PATIENT
  Sex: Female

DRUGS (16)
  1. TECFIDERA [Suspect]
     Indication: MULTIPLE SCLEROSIS
     Route: 048
     Dates: start: 20131219
  2. PEPCID [Concomitant]
  3. NORVASC [Concomitant]
  4. SYNTHROID [Concomitant]
  5. PROVIGIL [Concomitant]
  6. GABAPENTIN [Concomitant]
  7. SIMVASTATIN [Concomitant]
  8. TOPROL [Concomitant]
  9. LEXAPRO [Concomitant]
  10. FISH OIL [Concomitant]
  11. FLEXERIL [Concomitant]
  12. ATIVAN [Concomitant]
  13. CRANBERRY [Concomitant]
  14. COLACE [Concomitant]
  15. BENTYL [Concomitant]
  16. VITAMIN D [Concomitant]

REACTIONS (4)
  - Flatulence [Unknown]
  - Irritable bowel syndrome [Unknown]
  - Diarrhoea [Unknown]
  - Vomiting [Unknown]
